FAERS Safety Report 9026895 (Version 1)
Quarter: 2013Q1

REPORT INFORMATION
  Report Type: Spontaneous
  Country: US (occurrence: US)
  Receive Date: 20130123
  Receipt Date: 20130123
  Transmission Date: 20140127
  Serious: No
  Sender: FDA-Public Use
  Company Number: US-PFIZER INC-2013026258

PATIENT
  Age: 49 Year
  Sex: Female
  Weight: 75.74 kg

DRUGS (2)
  1. FELDENE [Suspect]
     Dosage: UNK
  2. COMPAZINE [Suspect]

REACTIONS (1)
  - Drug hypersensitivity [Unknown]
